FAERS Safety Report 9070296 (Version 1)
Quarter: 2013Q1

REPORT INFORMATION
  Report Type: Report from Study
  Country: IT (occurrence: IT)
  Receive Date: 20130215
  Receipt Date: 20130215
  Transmission Date: 20140127
  Serious: Yes (Death, Life-Threatening, Hospitalization)
  Sender: FDA-Public Use
  Company Number: PHHO2011IT03460

PATIENT
  Age: 64 Year
  Sex: Male
  Weight: 99 kg

DRUGS (13)
  1. AMN107 [Suspect]
     Indication: ACUTE LYMPHOCYTIC LEUKAEMIA
     Dosage: 800 MG, UNK
     Route: 048
     Dates: start: 20110128, end: 20110130
  2. AMN107 [Suspect]
     Dosage: NO TREATMENT
     Dates: start: 20110131, end: 20110206
  3. AMN107 [Suspect]
     Dosage: 600 MG, UNK
     Route: 048
     Dates: start: 20110207, end: 20110207
  4. AMN107 [Suspect]
     Dosage: 600 MG, UNK
     Route: 048
     Dates: start: 20110422, end: 20110502
  5. STI571 [Suspect]
     Indication: ACUTE LYMPHOCYTIC LEUKAEMIA
     Dosage: 600 MG, UNK
     Route: 048
     Dates: start: 20110311
  6. METHYLPREDNISOLONE [Suspect]
     Indication: ACUTE LYMPHOCYTIC LEUKAEMIA
     Dosage: 100 MG, UNK
     Route: 042
     Dates: start: 20110127, end: 20110210
  7. RANITIDINE [Concomitant]
     Indication: PROPHYLAXIS AGAINST GASTROINTESTINAL ULCER
  8. ACYCLOVIR [Concomitant]
     Indication: H1N1 INFLUENZA
  9. PIPERACILLIN SODIUM W/TAZOBACTAM SODIUM [Concomitant]
     Indication: PYREXIA
  10. FLUCONAZOLE [Concomitant]
     Indication: ANTIFUNGAL PROPHYLAXIS
  11. CEFTRIAXONE [Concomitant]
     Indication: PYREXIA
  12. TORVAST [Concomitant]
     Indication: HYPERCHOLESTEROLAEMIA
     Dosage: UNK
  13. ALLOPURINOL [Concomitant]
     Indication: PROPHYLAXIS

REACTIONS (11)
  - Caecitis [Fatal]
  - Bone marrow toxicity [None]
  - Bronchopulmonary aspergillosis [Recovered/Resolved]
  - Duodenal ulcer [Recovered/Resolved]
  - Gastrointestinal necrosis [Recovered/Resolved]
  - Bile acid malabsorption [Recovered/Resolved]
  - Hypotension [Recovered/Resolved]
  - Chills [Recovered/Resolved]
  - Urinary incontinence [Recovered/Resolved]
  - Trismus [Recovered/Resolved]
  - Unresponsive to stimuli [Recovered/Resolved]
